FAERS Safety Report 7411912-9 (Version None)
Quarter: 2011Q2

REPORT INFORMATION
  Report Type: 
  Country: None (occurrence: None)
  Receive Date: 20110408
  Receipt Date: 20110408
  Transmission Date: 20111010
  Serious: Yes (Death)
  Sender: FDA-Public Use
  Company Number: None

PATIENT
  Age: 78 Year
  Sex: Male
  Weight: 107 kg

DRUGS (1)
  1. CABAZITAXEL [Suspect]
     Dosage: 55 MG OTHER IV
     Route: 042
     Dates: start: 20110214, end: 20110214

REACTIONS (5)
  - DEHYDRATION [None]
  - MYOCARDIAL INFARCTION [None]
  - GASTROENTERITIS [None]
  - SUDDEN DEATH [None]
  - NEUTROPENIA [None]
